FAERS Safety Report 5485540-9 (Version None)
Quarter: 2007Q4

REPORT INFORMATION
  Report Type: 
  Country: None (occurrence: None)
  Receive Date: 20071011
  Receipt Date: 20071003
  Transmission Date: 20080405
  Serious: Yes (Other)
  Sender: FDA-Public Use
  Company Number: 2007332502

PATIENT
  Sex: Male

DRUGS (1)
  1. NON DROWSY SUDAFED DECONGESTANT TABLETS (PSEUDOEPHEDRINE) [Suspect]
     Indication: EAR PAIN
     Dosage: UNSPECIFIED, ORAL
     Route: 048
     Dates: start: 20071002

REACTIONS (4)
  - HALLUCINATION [None]
  - NIGHTMARE [None]
  - RESTLESSNESS [None]
  - SLEEP DISORDER [None]
